FAERS Safety Report 4636822-1 (Version None)
Quarter: 2005Q2

REPORT INFORMATION
  Report Type: 
  Country: None (occurrence: None)
  Receive Date: 20050414
  Receipt Date: 20050329
  Transmission Date: 20051028
  Serious: Yes (Hospitalization)
  Sender: FDA-Public Use
  Company Number: DSA_26193_2005

PATIENT
  Age: 40 Year
  Sex: Male

DRUGS (12)
  1. LORAZEPAM [Suspect]
     Dosage: 20 MG ONCE PO
     Route: 048
     Dates: start: 20041008, end: 20041008
  2. HALCION [Suspect]
     Dosage: 2.5 MG ONCE PO
     Route: 048
     Dates: start: 20041008, end: 20041008
  3. ROHYPNOL [Suspect]
     Dosage: DF ONCE PO
     Route: 048
     Dates: start: 20041008, end: 20041008
  4. TERNELIN [Suspect]
     Dosage: 20 MG ONCE PO
     Route: 048
     Dates: start: 20041008, end: 20041008
  5. VITAMIN A [Suspect]
     Dosage: 600 MG ONCE PO
     Route: 048
     Dates: start: 20041008, end: 20041008
  6. SLOWHEIM [Suspect]
     Dosage: 75 MG ONCE PO
     Route: 048
     Dates: start: 20041008, end: 20041008
  7. LORAZEPAM [Suspect]
     Indication: ANXIETY
     Dosage: DF UNK PO
     Route: 048
     Dates: start: 20020101
  8. HALCION [Suspect]
     Indication: ANXIETY
     Dosage: DF UNK PO
     Route: 048
     Dates: start: 20020101
  9. ROHYPNOL [Suspect]
     Indication: ANXIETY
     Dosage: DF UNK PO
     Route: 048
     Dates: start: 20020101
  10. TERNELIN [Suspect]
     Indication: ANXIETY
     Dosage: DF UNK PO
     Route: 048
     Dates: start: 20020101
  11. VITAMIN A [Suspect]
     Indication: ANXIETY
     Dosage: DF UNK PO
     Route: 048
     Dates: start: 20020101
  12. SLOWHEIM [Suspect]
     Indication: ANXIETY
     Dosage: DF UNK PO
     Route: 048
     Dates: start: 20020101

REACTIONS (14)
  - ABDOMINAL PAIN [None]
  - BLOOD POTASSIUM INCREASED [None]
  - BLOOD PRESSURE SYSTOLIC INCREASED [None]
  - BODY TEMPERATURE DECREASED [None]
  - DEPRESSION [None]
  - DRY SKIN [None]
  - GLASGOW COMA SCALE ABNORMAL [None]
  - HAEMODIALYSIS [None]
  - HEPATIC FUNCTION ABNORMAL [None]
  - INTENTIONAL MISUSE [None]
  - OEDEMA PERIPHERAL [None]
  - RENAL FAILURE ACUTE [None]
  - RHABDOMYOLYSIS [None]
  - SUICIDE ATTEMPT [None]
